FAERS Safety Report 4967311-2 (Version None)
Quarter: 2006Q2

REPORT INFORMATION
  Report Type: 
  Country: None (occurrence: None)
  Receive Date: 20060404
  Receipt Date: 20060324
  Transmission Date: 20061013
  Serious: Yes (Hospitalization)
  Sender: FDA-Public Use
  Company Number: 2006PV010843

PATIENT
  Age: 75 Year
  Sex: Male
  Weight: 82.1011 kg

DRUGS (11)
  1. BYETTA [Suspect]
     Indication: DIABETES MELLITUS NON-INSULIN-DEPENDENT
     Dosage: 5 MCG; SC
     Route: 058
     Dates: start: 20060309
  2. ACTOS [Concomitant]
  3. GLUCOPHAGE [Concomitant]
  4. HYDROCHLOROTHIAZIDE [Concomitant]
  5. FLOMAX [Concomitant]
  6. DETROL [Concomitant]
  7. DIOVAN [Concomitant]
  8. WELLBUTRIN [Concomitant]
  9. CYMBALTA [Concomitant]
  10. DILTIAZEM HCL [Concomitant]
  11. NIFEDIPINE [Concomitant]

REACTIONS (2)
  - DIZZINESS [None]
  - TACHYCARDIA [None]
